FAERS Safety Report 9203285 (Version 1)
Quarter: 2013Q2

REPORT INFORMATION
  Report Type: Spontaneous
  Country: US (occurrence: US)
  Receive Date: 20130402
  Receipt Date: 20130402
  Transmission Date: 20140414
  Serious: Yes (Other)
  Sender: FDA-Public Use
  Company Number: US-JNJFOC-20130312831

PATIENT
  Sex: Female

DRUGS (2)
  1. ROGAINE FOR MEN UNSPECIFIED INGREDIENT [Suspect]
     Route: 048
  2. ROGAINE FOR MEN UNSPECIFIED INGREDIENT [Suspect]
     Indication: PRODUCT USED FOR UNKNOWN INDICATION
     Route: 048

REACTIONS (4)
  - Toxicity to various agents [Unknown]
  - Breast cancer [Unknown]
  - Incorrect route of drug administration [Unknown]
  - Breast cancer stage III [None]
